FAERS Safety Report 20157003 (Version 1)
Quarter: 2021Q4

REPORT INFORMATION
  Report Type: Spontaneous
  Country: GR (occurrence: GR)
  Receive Date: 20211207
  Receipt Date: 20211207
  Transmission Date: 20220303
  Serious: No
  Sender: FDA-Public Use
  Company Number: GR-PFIZER INC-2021223633

PATIENT
  Age: 8 Year
  Sex: Female

DRUGS (1)
  1. GENOTROPIN [Suspect]
     Active Substance: SOMATROPIN
     Dosage: 4 MG
     Route: 058

REACTIONS (3)
  - Device use error [Unknown]
  - Poor quality device used [Unknown]
  - Device breakage [Unknown]
